APPROVED DRUG PRODUCT: METHADONE HYDROCHLORIDE
Active Ingredient: METHADONE HYDROCHLORIDE
Strength: 10MG/ML
Dosage Form/Route: INJECTABLE;INJECTION
Application: A208306 | Product #001 | TE Code: AP
Applicant: LONG GROVE PHARMACEUTICALS LLC
Approved: Oct 27, 2017 | RLD: No | RS: No | Type: RX